FAERS Safety Report 19209055 (Version 1)
Quarter: 2021Q2

REPORT INFORMATION
  Report Type: Spontaneous
  Country: US (occurrence: US)
  Receive Date: 20210503
  Receipt Date: 20210503
  Transmission Date: 20210717
  Serious: No
  Sender: FDA-Public Use
  Company Number: US-CELGENEUS-USA-20210405739

PATIENT
  Sex: Male
  Weight: 79.45 kg

DRUGS (2)
  1. REBLOZYL [Suspect]
     Active Substance: LUSPATERCEPT-AAMT
     Indication: MYELOFIBROSIS
     Route: 058
     Dates: start: 202012
  2. REBLOZYL [Suspect]
     Active Substance: LUSPATERCEPT-AAMT
     Dosage: 75 MILLIGRAM
     Route: 058
     Dates: start: 20210406, end: 20210406

REACTIONS (5)
  - Fatigue [Unknown]
  - Chills [Unknown]
  - Dyspnoea [Unknown]
  - Bone pain [Unknown]
  - Therapy non-responder [Unknown]
